FAERS Safety Report 4531608-0 (Version None)
Quarter: 2004Q4

REPORT INFORMATION
  Report Type: 
  Country: None (occurrence: None)
  Receive Date: 20041220
  Receipt Date: 20041207
  Transmission Date: 20050328
  Serious: Yes (Hospitalization)
  Sender: FDA-Public Use
  Company Number: FR-AMGEN-UK102007

PATIENT
  Sex: Male
  Weight: 86 kg

DRUGS (8)
  1. ARANESP [Suspect]
     Indication: ANAEMIA OF MALIGNANT DISEASE
     Route: 058
     Dates: start: 20041027, end: 20041129
  2. BACTRIM [Concomitant]
     Route: 048
     Dates: start: 20030721, end: 20041208
  3. MOPRAL [Concomitant]
     Route: 048
     Dates: start: 20030721
  4. VALTREX [Concomitant]
     Route: 048
     Dates: start: 20030721
  5. DEXAMETHASONE [Concomitant]
     Dates: start: 20040913
  6. ARA-C [Concomitant]
     Dates: start: 20040913
  7. OXALIPLATIN [Concomitant]
     Dates: start: 20040913
  8. RITUXIMAB [Concomitant]
     Dates: start: 20040913

REACTIONS (2)
  - ANAEMIA [None]
  - APLASIA PURE RED CELL [None]
